FAERS Safety Report 6426276-7 (Version None)
Quarter: 2009Q4

REPORT INFORMATION
  Report Type: 
  Country: None (occurrence: None)
  Receive Date: 20091104
  Receipt Date: 20091028
  Transmission Date: 20100525
  Serious: Yes (Death)
  Sender: FDA-Public Use
  Company Number: KR-ELI_LILLY_AND_COMPANY-KR200910007960

PATIENT

DRUGS (2)
  1. GEMZAR [Suspect]
     Indication: NON-SMALL CELL LUNG CANCER
     Dosage: 1250 MG/M2, DAYS 1 AND 8 OF A 4 WK CYCLE
     Route: 065
  2. ERLOTINIB [Concomitant]
     Indication: NON-SMALL CELL LUNG CANCER
     Dosage: 150 MG, DAILY (1/D) ON DAYS 15-28 OF A 4 WK CYCLE.
     Route: 048

REACTIONS (1)
  - PNEUMONIA BACTERIAL [None]
